FAERS Safety Report 5988853-7 (Version None)
Quarter: 2008Q4

REPORT INFORMATION
  Report Type: 
  Country: None (occurrence: None)
  Receive Date: 20081210
  Receipt Date: 20080505
  Transmission Date: 20090506
  Serious: Yes (Life-Threatening, Hospitalization, Other)
  Sender: FDA-Public Use
  Company Number: US-AMGEN-US243157

PATIENT
  Sex: Male

DRUGS (5)
  1. ENBREL [Suspect]
     Indication: RHEUMATOID ARTHRITIS
     Route: 065
     Dates: start: 20030101, end: 20031101
  2. INFLIXIMAB [Suspect]
     Indication: DRUG USE FOR UNKNOWN INDICATION
     Route: 042
     Dates: start: 20020701, end: 20021201
  3. ADALIMUMAB [Suspect]
     Indication: RHEUMATOID ARTHRITIS
     Route: 058
     Dates: start: 20031101, end: 20041201
  4. PREDNISONE TAB [Concomitant]
  5. NAPROXEN SODIUM [Concomitant]

REACTIONS (9)
  - DRUG INEFFECTIVE [None]
  - NAIL DISCOLOURATION [None]
  - NON-HODGKIN'S LYMPHOMA [None]
  - ONYCHOMADESIS [None]
  - PARAPROTEINAEMIA [None]
  - PROTEIN TOTAL INCREASED [None]
  - RASH [None]
  - SKIN INFECTION [None]
  - WEIGHT DECREASED [None]
